FAERS Safety Report 9121418 (Version 2)
Quarter: 2013Q1

REPORT INFORMATION
  Report Type: Spontaneous
  Country: US (occurrence: US)
  Receive Date: 20130225
  Receipt Date: 20130315
  Transmission Date: 20140127
  Serious: No
  Sender: FDA-Public Use
  Company Number: US-PFIZER INC-2013032230

PATIENT
  Age: 37 Year
  Sex: Female

DRUGS (3)
  1. XELJANZ [Suspect]
     Indication: RHEUMATOID ARTHRITIS
     Dosage: 5 MG, 2X/DAY
     Route: 048
     Dates: start: 20130102
  2. METHOTREXATE SODIUM [Suspect]
     Indication: RHEUMATOID ARTHRITIS
     Dosage: 15 MG, WEEKLY
     Route: 048
     Dates: start: 20111028
  3. CELECOXIB [Concomitant]
     Indication: RHEUMATOID ARTHRITIS
     Dosage: 100 MG, 2X/DAY
     Dates: start: 20120324

REACTIONS (5)
  - Vomiting [Not Recovered/Not Resolved]
  - Erythema [Unknown]
  - Local swelling [Unknown]
  - Dizziness [Unknown]
  - Nausea [Not Recovered/Not Resolved]
